FAERS Safety Report 18899768 (Version 2)
Quarter: 2021Q1

REPORT INFORMATION
  Report Type: Spontaneous
  Country: CA (occurrence: CA)
  Receive Date: 20210216
  Receipt Date: 20210303
  Transmission Date: 20210420
  Serious: Yes (Hospitalization)
  Sender: FDA-Public Use
  Company Number: CA-APOTEX-2021AP002589

PATIENT
  Age: 63 Year
  Sex: Female

DRUGS (3)
  1. APO?DOXY TABS 100MG (DOXYCYCLINE HYCLATE) [Suspect]
     Active Substance: DOXYCYCLINE HYCLATE
     Indication: ERYTHEMA
  2. APO?DOXY TABS 100MG (DOXYCYCLINE HYCLATE) [Suspect]
     Active Substance: DOXYCYCLINE HYCLATE
     Indication: RASH
  3. APO?DOXY TABS 100MG (DOXYCYCLINE HYCLATE) [Suspect]
     Active Substance: DOXYCYCLINE HYCLATE
     Indication: ACNE
     Dosage: 1 DOSAGE FORM, QD
     Route: 048
     Dates: start: 20210201, end: 20210202

REACTIONS (14)
  - Eye swelling [Not Recovered/Not Resolved]
  - Erythema [Not Recovered/Not Resolved]
  - Abdominal discomfort [Not Recovered/Not Resolved]
  - Swelling face [Not Recovered/Not Resolved]
  - Swollen tongue [Not Recovered/Not Resolved]
  - Rash macular [Not Recovered/Not Resolved]
  - Acne [Not Recovered/Not Resolved]
  - Rash [Not Recovered/Not Resolved]
  - Drug ineffective [Unknown]
  - Facial pain [Not Recovered/Not Resolved]
  - Hypoaesthesia oral [Not Recovered/Not Resolved]
  - Paraesthesia oral [Not Recovered/Not Resolved]
  - Hot flush [Recovering/Resolving]
  - Hypersensitivity [Not Recovered/Not Resolved]

NARRATIVE: CASE EVENT DATE: 20210201
